FAERS Safety Report 8780210 (Version 1)
Quarter: 2012Q4

REPORT INFORMATION
  Report Type: Spontaneous
  Country: FR (occurrence: None)
  Receive Date: 20120829
  Receipt Date: 20120829
  Transmission Date: 20130627
  Serious: Yes (Life-Threatening, Hospitalization)
  Sender: FDA-Public Use
  Company Number: 2012000197

PATIENT
  Age: 60 Year
  Sex: Male

DRUGS (13)
  1. ACEON (PERINDOPRIL ERBUMINE) TABLET [Suspect]
     Route: 048
     Dates: end: 201202
  2. LASILIX [Suspect]
     Route: 048
  3. CISPLATINE [Suspect]
     Route: 048
     Dates: start: 20120130
  4. GEMZAR [Suspect]
     Route: 048
     Dates: start: 20120130
  5. ISOPTINE (VERAPAMIL HYDROCHLORIDE) [Concomitant]
  6. PLAVIX (CLOPIDOGREL) [Concomitant]
  7. KARDEGIC (ACETYLSALICYLATE LYSINE) [Concomitant]
  8. INEXIUM (ESOMEPRAZOLE MAGNESIUM) [Concomitant]
  9. TAHOR (ATORVASTATIN CALCIUM) [Concomitant]
  10. LANTUS (INSULIN GLARGINE) [Concomitant]
  11. TEMESTA (LORAZEPAM) [Concomitant]
  12. GLUCOPHAGE (METFORMIN HYDROCHLORIDE) [Concomitant]
  13. GLIMEPRIRIDE (GLIMEPIRIDE) [Concomitant]

REACTIONS (7)
  - Lactic acidosis [None]
  - Chest pain [None]
  - Diarrhoea [None]
  - Abdominal pain [None]
  - Decreased appetite [None]
  - Renal failure acute [None]
  - Dyspnoea [None]
